FAERS Safety Report 14455002 (Version 3)
Quarter: 2018Q4

REPORT INFORMATION
  Report Type: Spontaneous
  Country: US (occurrence: US)
  Receive Date: 20180129
  Receipt Date: 20181010
  Transmission Date: 20190204
  Serious: Yes (Hospitalization)
  Sender: FDA-Public Use
  Company Number: US-DSJP-DSU-2017-138506

PATIENT

DRUGS (1)
  1. AZOR [Suspect]
     Active Substance: AMLODIPINE BESYLATE\OLMESARTAN MEDOXOMIL
     Indication: HYPERTENSION
     Dosage: 10/40 MG, QD
     Route: 048
     Dates: start: 20130513, end: 20160804

REACTIONS (6)
  - Polyp [Recovered/Resolved]
  - Abdominal hernia [Unknown]
  - Umbilical hernia [Recovered/Resolved]
  - Iron deficiency anaemia [Not Recovered/Not Resolved]
  - Sprue-like enteropathy [Recovering/Resolving]
  - Acute kidney injury [Recovered/Resolved]

NARRATIVE: CASE EVENT DATE: 201501
